FAERS Safety Report 6641495-2 (Version None)
Quarter: 2010Q1

REPORT INFORMATION
  Report Type: 
  Country: None (occurrence: None)
  Receive Date: 20100318
  Receipt Date: 20100305
  Transmission Date: 20100710
  Serious: Yes (Other)
  Sender: FDA-Public Use
  Company Number: AT-WATSON-2010-02662

PATIENT
  Age: 13 Year
  Sex: Male

DRUGS (4)
  1. ETOPOSIDE [Suspect]
     Indication: ACUTE PROMYELOCYTIC LEUKAEMIA
     Dosage: 125 MG/M2, DAILY
  2. CYTARABINE [Suspect]
     Indication: ACUTE PROMYELOCYTIC LEUKAEMIA
     Dosage: 3 G/M2 X 6 DOSES
  3. CYTARABINE [Suspect]
     Dosage: 40 MG, UNK
     Route: 039
  4. ISOTRETINOIN [Suspect]
     Indication: ACUTE PROMYELOCYTIC LEUKAEMIA

REACTIONS (1)
  - ACUTE RESPIRATORY DISTRESS SYNDROME [None]
